FAERS Safety Report 9723902 (Version 1)
Quarter: 2013Q4

REPORT INFORMATION
  Report Type: Spontaneous
  Country: UA (occurrence: UA)
  Receive Date: 20131202
  Receipt Date: 20131202
  Transmission Date: 20140711
  Serious: Yes (Other)
  Sender: FDA-Public Use
  Company Number: UA-ABBVIE-13P-269-1174535-00

PATIENT
  Sex: 0

DRUGS (1)
  1. TRICOR [Suspect]
     Indication: HYPERTRIGLYCERIDAEMIA
     Route: 048

REACTIONS (5)
  - Convulsion [Unknown]
  - Pain [Unknown]
  - Aspartate aminotransferase increased [Recovered/Resolved]
  - Myalgia [Recovered/Resolved]
  - Alanine aminotransferase increased [Recovered/Resolved]
